FAERS Safety Report 25632624 (Version 1)
Quarter: 2025Q3

REPORT INFORMATION
  Report Type: Spontaneous
  Country: US (occurrence: US)
  Receive Date: 20250801
  Receipt Date: 20250801
  Transmission Date: 20251020
  Serious: No
  Sender: GRIFOLS
  Company Number: US-IGSA-BIG0031325

PATIENT
  Age: 28 Year
  Sex: Female

DRUGS (1)
  1. GAMUNEX-C [Suspect]
     Active Substance: HUMAN IMMUNOGLOBULIN G
     Indication: Polyneuropathy
     Dosage: 175 GRAM, Q.4WK.
     Route: 042

REACTIONS (3)
  - Hyperglycaemia [Unknown]
  - Heart rate abnormal [Unknown]
  - Blood glucose increased [Unknown]

NARRATIVE: CASE EVENT DATE: 20241017
